FAERS Safety Report 9201035 (Version 5)
Quarter: 2014Q1

REPORT INFORMATION
  Report Type: Spontaneous
  Country: US (occurrence: None)
  Receive Date: 20130327
  Receipt Date: 20140218
  Transmission Date: 20141002
  Serious: Yes (Hospitalization, Other)
  Sender: FDA-Public Use
  Company Number: ADR-2013-00486

PATIENT
  Sex: Female

DRUGS (1)
  1. BACLOFEN INTRATHECAL [Suspect]
     Indication: MUSCLE SPASTICITY

REACTIONS (10)
  - Implant site extravasation [None]
  - Suture rupture [None]
  - Procedural vomiting [None]
  - Nausea [None]
  - Asthenia [None]
  - Movement disorder [None]
  - Weight decreased [None]
  - Cystic lymphangioma [None]
  - Cerebrospinal fluid leakage [None]
  - Device allergy [None]
